FAERS Safety Report 23579603 (Version 1)
Quarter: 2024Q1

REPORT INFORMATION
  Report Type: Report from Study
  Country: US (occurrence: US)
  Receive Date: 20240229
  Receipt Date: 20240229
  Transmission Date: 20240410
  Serious: Yes (Other)
  Sender: FDA-Public Use
  Company Number: US-JNJFOC-20240254820

PATIENT
  Sex: Female

DRUGS (2)
  1. SPRAVATO [Suspect]
     Active Substance: ESKETAMINE
     Indication: Depression
     Dates: start: 202401
  2. SPRAVATO [Suspect]
     Active Substance: ESKETAMINE
     Dates: start: 2024

REACTIONS (5)
  - Loss of consciousness [Unknown]
  - Nail infection [Unknown]
  - Blood iron decreased [Unknown]
  - Contusion [Unknown]
  - Vomiting [Unknown]

NARRATIVE: CASE EVENT DATE: 20240101
